FAERS Safety Report 7133230-9 (Version None)
Quarter: 2010Q4

REPORT INFORMATION
  Report Type: 
  Country: None (occurrence: None)
  Receive Date: 20101202
  Receipt Date: 20101122
  Transmission Date: 20110411
  Serious: Yes (Other)
  Sender: FDA-Public Use
  Company Number: MK-SHIRE-SPV1-2010-02037

PATIENT
  Sex: Male

DRUGS (1)
  1. IDURSULFASE [Suspect]
     Indication: MUCOPOLYSACCHARIDOSIS II
     Dosage: 0.5 MG/KG, UNK
     Route: 041
     Dates: start: 20100512

REACTIONS (4)
  - BODY TEMPERATURE DECREASED [None]
  - DIARRHOEA [None]
  - NAUSEA [None]
  - VOMITING [None]
